FAERS Safety Report 6051571-3 (Version None)
Quarter: 2009Q1

REPORT INFORMATION
  Report Type: 
  Country: None (occurrence: None)
  Receive Date: 20090126
  Receipt Date: 20090119
  Transmission Date: 20090719
  Serious: Yes (Hospitalization)
  Sender: FDA-Public Use
  Company Number: B0554986A

PATIENT
  Age: 77 Year
  Sex: Male

DRUGS (7)
  1. ZYLORIC [Suspect]
     Route: 048
     Dates: start: 19980101, end: 20081021
  2. CLAMOXYL [Suspect]
     Indication: ERYSIPELAS
     Dosage: 4G PER DAY
     Route: 048
     Dates: start: 20081003, end: 20081021
  3. DILTIAZEM HCL [Concomitant]
     Route: 048
     Dates: start: 19980101
  4. CAPTOPRIL AND HYDROCHLOROTHIAZIDE [Concomitant]
     Route: 048
     Dates: start: 19980101
  5. XATRAL [Concomitant]
     Route: 048
     Dates: start: 19980101
  6. KARDEGIC [Concomitant]
     Route: 048
     Dates: start: 19980101
  7. DERMOCORTICOID [Concomitant]
     Route: 061

REACTIONS (4)
  - ARTHRALGIA [None]
  - DYSHIDROSIS [None]
  - PRURITUS [None]
  - RASH [None]
